FAERS Safety Report 11890875 (Version 1)
Quarter: 2016Q1

REPORT INFORMATION
  Report Type: Spontaneous
  Country: FR (occurrence: FR)
  Receive Date: 20160106
  Receipt Date: 20160106
  Transmission Date: 20160526
  Serious: Yes (Other)
  Sender: FDA-Public Use
  Company Number: FR-AMGEN-FRASP2015140490

PATIENT
  Age: 85 Year
  Sex: Male
  Weight: 82 kg

DRUGS (6)
  1. XGEVA [Suspect]
     Active Substance: DENOSUMAB
     Indication: PRODUCT USED FOR UNKNOWN INDICATION
     Dosage: 40 MG (120 MG), QMO
     Route: 048
     Dates: start: 201310, end: 201502
  2. TAXOTERE [Concomitant]
     Active Substance: DOCETAXEL
     Dosage: EVERY 15 DAYS
     Dates: start: 201310, end: 201409
  3. FUROSEMIDE. [Concomitant]
     Active Substance: FUROSEMIDE
     Dosage: 40 MG, QD
     Route: 048
  4. OROCAL D3 [Concomitant]
     Active Substance: CALCIUM CARBONATE\CHOLECALCIFEROL
     Dosage: UNK
     Route: 048
     Dates: start: 201310
  5. INNOHEP [Concomitant]
     Active Substance: TINZAPARIN SODIUM
     Indication: PHLEBITIS
     Dosage: 14000 IU (0.7 ML), QD
     Route: 058
     Dates: start: 201406
  6. BISOPROLOL [Concomitant]
     Active Substance: BISOPROLOL
     Dosage: 2.5 MG, QD
     Route: 048

REACTIONS (2)
  - Sinusitis [Not Recovered/Not Resolved]
  - Osteonecrosis of jaw [Not Recovered/Not Resolved]

NARRATIVE: CASE EVENT DATE: 201502
